FAERS Safety Report 8576405-4 (Version None)
Quarter: 2012Q3

REPORT INFORMATION
  Report Type: 
  Country: None (occurrence: None)
  Receive Date: 20120807
  Receipt Date: 20120731
  Transmission Date: 20120928
  Serious: Yes (Other)
  Sender: FDA-Public Use
  Company Number: GB-PFIZER INC-2012057810

PATIENT
  Age: 36 Year
  Sex: Female

DRUGS (5)
  1. AMITRIPTYLINE HCL [Suspect]
     Dosage: 25 MG, 1X/DAY
     Route: 048
  2. PREGABALIN [Suspect]
     Indication: PAIN
     Dosage: 150 MG, 2X/DAY
     Route: 048
     Dates: start: 20111203, end: 20111209
  3. NEUROBLOC [Suspect]
     Indication: DYSTONIA
     Dosage: 10000 IU EVERY 16 WEEKS
     Route: 030
     Dates: start: 20090604
  4. BACLOFEN [Suspect]
     Dosage: 5 MG, 3X/DAY
     Dates: end: 20111209
  5. CLONAZEPAM [Suspect]
     Dosage: 2 MG, 1X/DAY
     Route: 048

REACTIONS (1)
  - ABORTION SPONTANEOUS [None]
